FAERS Safety Report 5100830-7 (Version None)
Quarter: 2006Q3

REPORT INFORMATION
  Report Type: 
  Country: None (occurrence: None)
  Receive Date: 20060911
  Receipt Date: 20060831
  Transmission Date: 20061208
  Serious: Yes (Death, Hospitalization)
  Sender: FDA-Public Use
  Company Number: US-JNJFOC-20050104488

PATIENT
  Sex: Male
  Weight: 52.16 kg

DRUGS (44)
  1. REMICADE [Suspect]
     Route: 042
     Dates: start: 20040927, end: 20041111
  2. REMICADE [Suspect]
     Route: 042
     Dates: start: 20040927, end: 20041111
  3. REMICADE [Suspect]
     Indication: CROHN'S DISEASE
     Route: 042
     Dates: start: 20040927, end: 20041111
  4. H-C TUSSIVE [Concomitant]
  5. PENTASA [Concomitant]
     Indication: CROHN'S DISEASE
  6. IMURAN [Concomitant]
     Route: 048
  7. IMURAN [Concomitant]
     Indication: CROHN'S DISEASE
     Route: 048
  8. PERCOCET [Concomitant]
     Dosage: DOSE 5/325 ONE EVERY 6 HOURS AS NEEDED
  9. PERCOCET [Concomitant]
     Indication: PAIN
  10. PREVACID [Concomitant]
     Route: 048
  11. MULTI-VITAMIN [Concomitant]
  12. PREDNISONE [Concomitant]
     Indication: CROHN'S DISEASE
  13. CIPRO [Concomitant]
     Dosage: FOR TWO WEEKS
  14. CIPRO [Concomitant]
     Dosage: PRESCRIBED FOR TWO WEEKS
  15. CIPRO [Concomitant]
     Dosage: IVPB
  16. CIPRO [Concomitant]
     Indication: CROHN'S DISEASE
     Dosage: IVPB (INTRAVENOUS PIGGYBACK)
  17. FLAGYL [Concomitant]
     Dosage: PRESCRIBED FOR TWO WEEKS
  18. FLAGYL [Concomitant]
     Dosage: PRESCRIBED FOR TWO WEEKS
  19. FLAGYL [Concomitant]
     Dosage: ORAL
  20. FLAGYL [Concomitant]
     Dosage: IVPB
  21. FLAGYL [Concomitant]
     Dosage: IVPB (INTRAVENOUS PIGGBACK)
  22. FLAGYL [Concomitant]
     Indication: CROHN'S DISEASE
     Dosage: IVPB (INTRAVENOUS PIGGBACK)
  23. DIAZEPAM [Concomitant]
     Route: 048
  24. ONDANSETRON [Concomitant]
     Indication: VOMITING
     Dosage: IVP ( INTRAVENOUS PUSH)
     Route: 042
  25. PHENERGAN HCL [Concomitant]
     Dosage: ORALLY
     Route: 030
  26. PHENERGAN HCL [Concomitant]
     Route: 030
  27. HYDROCODONE BITARTRATE [Concomitant]
  28. BETAMETHASONE [Concomitant]
     Dosage: 0.05 PERCENT CREAM
  29. HYDROCORTISONE [Concomitant]
     Dosage: 2.5 PERCENT CREAM
  30. ASACOL [Concomitant]
  31. ASACOL [Concomitant]
  32. ORPHENADRINE CITRATE [Concomitant]
  33. ROXICET [Concomitant]
  34. OXYCODONE HCL [Concomitant]
  35. VALTREX [Concomitant]
  36. ALPRAZOLAM [Concomitant]
  37. ALPRAZOLAM [Concomitant]
  38. DOXYCYCLINE [Concomitant]
     Dosage: FOR TEN DAYS
  39. TRIAMCINOLONE [Concomitant]
  40. CEFACLOR [Concomitant]
     Dosage: FOR TEN DAYS
  41. MECLIZINE [Concomitant]
  42. ACETAMINOPHEN [Concomitant]
  43. KETOROLAC TROMETHAMINE [Concomitant]
  44. ALBUTEROL [Concomitant]

REACTIONS (13)
  - ACINETOBACTER INFECTION [None]
  - ACUTE RESPIRATORY DISTRESS SYNDROME [None]
  - CHEST PAIN [None]
  - DISSEMINATED TUBERCULOSIS [None]
  - FATIGUE [None]
  - LYMPHOHISTIOCYTOSIS [None]
  - MYALGIA [None]
  - NAUSEA [None]
  - PANCYTOPENIA [None]
  - RESPIRATORY FAILURE [None]
  - SEPSIS [None]
  - STENOTROPHOMONAS INFECTION [None]
  - VIRAL INFECTION [None]
